FAERS Safety Report 19922839 (Version 5)
Quarter: 2022Q2

REPORT INFORMATION
  Report Type: Spontaneous
  Country: US (occurrence: US)
  Receive Date: 20211005
  Receipt Date: 20220624
  Transmission Date: 20220721
  Serious: No
  Sender: FDA-Public Use
  Company Number: US-AVEO ONCOLOGY-2021-AVEO-US003479

PATIENT

DRUGS (42)
  1. FOTIVDA [Suspect]
     Active Substance: TIVOZANIB HYDROCHLORIDE
     Indication: Renal cell carcinoma
     Dosage: 1.34  DAILY FOR 21 DAYS ON, 7 DAYS OFF
     Route: 048
     Dates: start: 20210726
  2. FOTIVDA [Suspect]
     Active Substance: TIVOZANIB HYDROCHLORIDE
     Dosage: 1.34 MG DAILY FOR 21 DAYS, FOLLOWED BY A 7-DAY BREAK.
     Route: 048
     Dates: start: 20210728
  3. FOTIVDA [Suspect]
     Active Substance: TIVOZANIB HYDROCHLORIDE
     Dosage: 0.89 MG DAILY FOR 21 DAYS THEN 7 DAYS OFF
     Dates: start: 20210726
  4. AMLODIPINE [Concomitant]
     Active Substance: AMLODIPINE BESYLATE
     Dosage: 5 MG
  5. BENZONATATE [Concomitant]
     Active Substance: BENZONATATE
     Dosage: 200 MG
  6. CARVEDILOL [Concomitant]
     Active Substance: CARVEDILOL
     Dosage: 12.5 MG
  7. CLONAZEPAM [Concomitant]
     Active Substance: CLONAZEPAM
     Dosage: 0.5 MG
  8. CRANBERRY [Concomitant]
     Active Substance: CRANBERRY
  9. CYCLOBENZAPRINE [Concomitant]
     Active Substance: CYCLOBENZAPRINE
     Dosage: 10 UNK
  10. ELIQUIS [Concomitant]
     Active Substance: APIXABAN
     Dosage: 2.5 MG
  11. GABAPENTIN [Concomitant]
     Active Substance: GABAPENTIN
     Dosage: 100 MG
  12. HYDROCODONE BITARTRATE AND ACETAMINOPHEN [Concomitant]
     Active Substance: ACETAMINOPHEN\HYDROCODONE BITARTRATE
     Dosage: 5-325 MG
  13. HYDROCORTISONE [Concomitant]
     Active Substance: HYDROCORTISONE
     Dosage: 5 MG AND 1%
  14. LEVOTHYROXINE [Concomitant]
     Active Substance: LEVOTHYROXINE
     Dosage: 112 UG
  15. VITAMIN D [Concomitant]
     Active Substance: VITAMIN D NOS
     Dosage: 25 UG
  16. LOSARTAN POTASSIUM [Concomitant]
     Active Substance: LOSARTAN POTASSIUM
     Dosage: 25 MG
  17. MAGNESIUM [Concomitant]
     Active Substance: MAGNESIUM
     Dosage: 400 MG
  18. MONTELUKAST [Concomitant]
     Active Substance: MONTELUKAST SODIUM
     Dosage: 10 MG
  19. SIMVASTATIN [Concomitant]
     Active Substance: SIMVASTATIN
     Dosage: 20 MG
  20. VITAMIN B COMPLEX [Concomitant]
     Active Substance: CYANOCOBALAMIN\DEXPANTHENOL\NIACINAMIDE\PYRIDOXINE HYDROCHLORIDE\RIBOFLAVIN 5^-PHOSPHATE SODIUM\THIA
  21. OMEPRAZOLE [Concomitant]
     Active Substance: OMEPRAZOLE
     Dosage: 10 MG
  22. ACETAMINOPHEN [Concomitant]
     Active Substance: ACETAMINOPHEN
  23. ARNICARE [Concomitant]
     Active Substance: HOMEOPATHICS
  24. BIOTIN [Concomitant]
     Active Substance: BIOTIN
  25. KLONOPIN [Concomitant]
     Active Substance: CLONAZEPAM
     Dosage: 0.5 MG
  26. ROBITUSSIN COUGH AND CHEST CONGESTION DM [Concomitant]
     Active Substance: DEXTROMETHORPHAN HYDROBROMIDE\GUAIFENESIN
     Indication: Cough
     Dosage: NIGHT TIME
  27. SIMETHICONE (DIMETHICONE) [Concomitant]
     Active Substance: DIMETHICONE
  28. ZOFRAN [Concomitant]
     Active Substance: ONDANSETRON HYDROCHLORIDE
  29. ONDANSETRON [Concomitant]
     Active Substance: ONDANSETRON
  30. BACTRIM [Concomitant]
     Active Substance: SULFAMETHOXAZOLE\TRIMETHOPRIM
  31. AUGMENTIN [Concomitant]
     Active Substance: AMOXICILLIN\CLAVULANATE POTASSIUM
     Dosage: 875 MG/125MG
  32. COREG [Concomitant]
     Active Substance: CARVEDILOL
     Dosage: 12.5 MG
  33. VITAMIN C [Concomitant]
     Active Substance: ASCORBIC ACID
  34. NORCO [Concomitant]
     Active Substance: ACETAMINOPHEN\HYDROCODONE BITARTRATE
     Dosage: 5 MG
  35. SINGULAIR [Concomitant]
     Active Substance: MONTELUKAST SODIUM
  36. NORVASC [Concomitant]
     Active Substance: AMLODIPINE BESYLATE
  37. CREATINE [Concomitant]
     Active Substance: CREATINE
  38. Melatonin/CBD [Concomitant]
  39. DULCOLAX NOS [Concomitant]
     Active Substance: BISACODYL OR DOCUSATE SODIUM
  40. PROBIOTICS NOS [Concomitant]
     Active Substance: PROBIOTICS NOS
  41. MIRALAX [Concomitant]
     Active Substance: POLYETHYLENE GLYCOL 3350
  42. TESSALON [Concomitant]
     Active Substance: BENZONATATE

REACTIONS (33)
  - Dysphonia [Unknown]
  - Blood pressure increased [Unknown]
  - Diarrhoea [Unknown]
  - Cough [Unknown]
  - Nausea [Unknown]
  - Fatigue [Unknown]
  - Headache [Unknown]
  - Palmar-plantar erythrodysaesthesia syndrome [Unknown]
  - Muscle spasms [Unknown]
  - Insomnia [Unknown]
  - Urinary tract infection [Unknown]
  - Blood glucose increased [Unknown]
  - Pain [Unknown]
  - Skin disorder [Unknown]
  - Onychoclasis [Unknown]
  - Constipation [Unknown]
  - Aphonia [Unknown]
  - Limb injury [Unknown]
  - Traumatic haematoma [Unknown]
  - Dysphagia [Unknown]
  - Haemoptysis [Unknown]
  - Increased viscosity of bronchial secretion [None]
  - Epistaxis [Unknown]
  - Pain [Unknown]
  - Dry mouth [Unknown]
  - Gastrointestinal disorder [Unknown]
  - Dysgeusia [Unknown]
  - Blood thyroid stimulating hormone increased [Unknown]
  - Dyspnoea [Unknown]
  - Respiratory tract congestion [Unknown]
  - Laryngitis [Unknown]
  - Therapy interrupted [Unknown]
  - Faeces discoloured [Unknown]

NARRATIVE: CASE EVENT DATE: 20220128
